FAERS Safety Report 7355416-0 (Version None)
Quarter: 2011Q1

REPORT INFORMATION
  Report Type: 
  Country: None (occurrence: None)
  Receive Date: 20110316
  Receipt Date: 20110304
  Transmission Date: 20110831
  Serious: Yes (Other)
  Sender: FDA-Public Use
  Company Number: JP-ELI_LILLY_AND_COMPANY-JP201103001738

PATIENT
  Age: 72 Year
  Sex: Male

DRUGS (2)
  1. ALIMTA [Suspect]
     Route: 042
  2. CARBOPLATIN [Concomitant]

REACTIONS (3)
  - DERMATITIS BULLOUS [None]
  - MUCOUS MEMBRANE DISORDER [None]
  - SKIN DISORDER [None]
